FAERS Safety Report 4942015-0 (Version None)
Quarter: 2006Q1

REPORT INFORMATION
  Report Type: 
  Country: None (occurrence: None)
  Receive Date: 20060308
  Receipt Date: 20060227
  Transmission Date: 20060701
  Serious: Yes (Other)
  Sender: FDA-Public Use
  Company Number: 2006028899

PATIENT
  Age: 48 Year
  Sex: Male

DRUGS (1)
  1. NEOSPORIN [Suspect]
     Indication: LACERATION
     Dosage: A LIGHT TOPICAL COATING TWICE/DAY, TOPICAL
     Route: 061
     Dates: start: 20050401, end: 20050401

REACTIONS (4)
  - APPLICATION SITE ERYTHEMA [None]
  - SKIN DISCOLOURATION [None]
  - WALKING AID USER [None]
  - WOUND INFECTION [None]
